FAERS Safety Report 7969260-4 (Version None)
Quarter: 2011Q4

REPORT INFORMATION
  Report Type: 
  Country: None (occurrence: None)
  Receive Date: 20111209
  Receipt Date: 20111201
  Transmission Date: 20120403
  Serious: Yes (Other)
  Sender: FDA-Public Use
  Company Number: IT-ASTRAZENECA-2011SE73232

PATIENT
  Sex: Female

DRUGS (3)
  1. FASLODEX [Suspect]
     Indication: BREAST CANCER
     Dosage: 500 MG
     Route: 030
     Dates: start: 20110722
  2. FASLODEX [Suspect]
     Dosage: SECOND DOSE
     Route: 030
     Dates: start: 20110805
  3. FASLODEX [Suspect]
     Route: 030

REACTIONS (3)
  - LIP SWELLING [None]
  - DYSPNOEA [None]
  - WHEEZING [None]
